FAERS Safety Report 12990540 (Version 2)
Quarter: 2016Q4

REPORT INFORMATION
  Report Type: Report from Study
  Country: US (occurrence: US)
  Receive Date: 20161201
  Receipt Date: 20161214
  Transmission Date: 20170207
  Serious: Yes (Other)
  Sender: FDA-Public Use
  Company Number: US-MALLINCKRODT-T201605799

PATIENT
  Age: 57 Year
  Sex: Female

DRUGS (2)
  1. REPOSITORY CORTICOTROPIN INJECTION [Suspect]
     Active Substance: CORTICOTROPIN
     Indication: RHEUMATOID ARTHRITIS
     Dosage: 80U/ML, 2 TIMES PER WEEK, TUES/FRI
     Route: 030
     Dates: start: 20160928, end: 20161108
  2. REPOSITORY CORTICOTROPIN INJECTION [Suspect]
     Active Substance: CORTICOTROPIN
     Indication: SYSTEMIC LUPUS ERYTHEMATOSUS
     Dosage: 2 TIMES PER WEEK
     Route: 065
     Dates: end: 20161121

REACTIONS (8)
  - Increased appetite [Unknown]
  - Malaise [Unknown]
  - Hypersensitivity [Unknown]
  - Weight decreased [Unknown]
  - Pharyngitis streptococcal [Unknown]
  - Nausea [Unknown]
  - Injection site bruising [Unknown]
  - Feeding disorder [Unknown]

NARRATIVE: CASE EVENT DATE: 2016
